FAERS Safety Report 21831646 (Version 4)
Quarter: 2024Q3

REPORT INFORMATION
  Report Type: Spontaneous
  Country: US (occurrence: US)
  Receive Date: 20230106
  Receipt Date: 20240724
  Transmission Date: 20241016
  Serious: No
  Sender: UPSHER-SMITH
  Company Number: US-UPSHER-SMITH LABORATORIES, LLC-2022USL00804

PATIENT
  Age: 60 Year
  Sex: Female
  Weight: 77.098 kg

DRUGS (11)
  1. PROPAFENONE HYDROCHLORIDE [Suspect]
     Active Substance: PROPAFENONE HYDROCHLORIDE
     Indication: Ventricular tachycardia
     Dosage: 225 MG, 2X/DAY
     Route: 048
  2. PROPAFENONE HYDROCHLORIDE [Suspect]
     Active Substance: PROPAFENONE HYDROCHLORIDE
     Dosage: 225 MG, 2X/DAY
     Route: 048
  3. PROPAFENONE HYDROCHLORIDE [Suspect]
     Active Substance: PROPAFENONE HYDROCHLORIDE
     Dosage: 225 MG, 2X/DAY
     Route: 048
  4. PROPAFENONE HYDROCHLORIDE [Suspect]
     Active Substance: PROPAFENONE HYDROCHLORIDE
     Dosage: 225 MG, 2X/DAY
     Route: 048
     Dates: start: 20221118, end: 202211
  5. PROPAFENONE HYDROCHLORIDE [Suspect]
     Active Substance: PROPAFENONE HYDROCHLORIDE
     Dosage: 225 MG, 1X/DAY IN THE EVENING
     Route: 048
     Dates: start: 202211
  6. PROPAFENONE HYDROCHLORIDE [Suspect]
     Active Substance: PROPAFENONE HYDROCHLORIDE
     Dosage: 225 MG, 2X/DAY
     Route: 048
     Dates: start: 2023
  7. RYTHMOL [Concomitant]
     Active Substance: PROPAFENONE HYDROCHLORIDE
     Dosage: 225 MG, 1X/DAY IN MORNING
     Route: 048
     Dates: end: 2023
  8. RYTHMOL [Concomitant]
     Active Substance: PROPAFENONE HYDROCHLORIDE
     Dosage: WEANED OFF
     Dates: start: 2023, end: 2023
  9. TEGRETOL [Concomitant]
     Active Substance: CARBAMAZEPINE
     Dosage: 200 MG, 2X/DAY
     Dates: start: 1988
  10. VITAMINS [Concomitant]
     Active Substance: VITAMINS
  11. FENOFIBRATE [Concomitant]
     Active Substance: FENOFIBRATE
     Dosage: 145 MG, 1X/DAY

REACTIONS (5)
  - Oedema [Unknown]
  - Weight increased [Not Recovered/Not Resolved]
  - Stress [Recovered/Resolved]
  - Therapeutic product effect incomplete [Recovered/Resolved]
  - Product dose omission in error [Recovered/Resolved]

NARRATIVE: CASE EVENT DATE: 20221122
